FAERS Safety Report 18427186 (Version 6)
Quarter: 2021Q1

REPORT INFORMATION
  Report Type: Spontaneous
  Country: US (occurrence: US)
  Receive Date: 20201026
  Receipt Date: 20210312
  Transmission Date: 20210419
  Serious: No
  Sender: FDA-Public Use
  Company Number: US-PFIZER INC-2020411579

PATIENT
  Age: 52 Year
  Sex: Female

DRUGS (1)
  1. XELJANZ XR [Suspect]
     Active Substance: TOFACITINIB CITRATE
     Indication: RHEUMATOID ARTHRITIS
     Dosage: 11 MG, 1X/DAY
     Route: 048
     Dates: start: 20200820

REACTIONS (7)
  - Sensitivity to weather change [Unknown]
  - Headache [Recovered/Resolved]
  - Weight increased [Unknown]
  - Gait disturbance [Recovering/Resolving]
  - Arthralgia [Recovering/Resolving]
  - Arthritis [Unknown]
  - Pain in extremity [Recovering/Resolving]

NARRATIVE: CASE EVENT DATE: 20200828
